FAERS Safety Report 8143731-2 (Version None)
Quarter: 2012Q1

REPORT INFORMATION
  Report Type: 
  Country: None (occurrence: None)
  Receive Date: 20120217
  Receipt Date: 20120210
  Transmission Date: 20120608
  Serious: Yes (Other)
  Sender: FDA-Public Use
  Company Number: US-SANOFI-AVENTIS-2012SA009267

PATIENT
  Sex: Male

DRUGS (7)
  1. FLUOROURACIL [Suspect]
     Route: 041
  2. LEUCOVORIN CALCIUM [Suspect]
     Route: 041
  3. FLUOROURACIL [Suspect]
     Route: 041
  4. LEUCOVORIN CALCIUM [Suspect]
     Route: 041
  5. ELOXATIN [Suspect]
     Route: 041
  6. ELOXATIN [Suspect]
     Route: 041
  7. BEVACIZUMAB [Suspect]

REACTIONS (3)
  - CARDIOMYOPATHY [None]
  - DYSPNOEA [None]
  - CHEST PAIN [None]
